FAERS Safety Report 11512349 (Version 9)
Quarter: 2016Q1

REPORT INFORMATION
  Report Type: Report from Study
  Country: GB (occurrence: GB)
  Receive Date: 20150916
  Receipt Date: 20160118
  Transmission Date: 20160525
  Serious: Yes (Hospitalization)
  Sender: FDA-Public Use
  Company Number: GB-ROCHE-1633844

PATIENT
  Age: 67 Year
  Sex: Female
  Weight: 61.2 kg

DRUGS (7)
  1. COTRIMOXAZOLE [Concomitant]
     Active Substance: SULFAMETHOXAZOLE\TRIMETHOPRIM
     Indication: INFECTION PROPHYLAXIS
     Route: 048
     Dates: start: 20150910
  2. OBINUTUZUMAB [Suspect]
     Active Substance: OBINUTUZUMAB
     Dosage: RESTARTED.
     Route: 042
     Dates: start: 20150922
  3. SALINE ORAL OTC [Concomitant]
     Active Substance: SODIUM CHLORIDE
     Indication: HYPOTENSION
     Route: 042
     Dates: start: 20150908, end: 20150908
  4. PLATELETS [Concomitant]
     Active Substance: HUMAN PLATELET, ALLOGENIC
     Indication: THROMBOCYTOPENIA
     Route: 042
     Dates: start: 20150910, end: 20150910
  5. OBINUTUZUMAB [Suspect]
     Active Substance: OBINUTUZUMAB
     Indication: CHRONIC LYMPHOCYTIC LEUKAEMIA
     Dosage: THE LAST DOSE PRIOR TO THE EVENT WAS ADMINISTERED ON 08/SEP/2015 (100MG). SECOND DOSE HELD.
     Route: 042
     Dates: start: 20150908, end: 20150908
  6. METOCLOPRAMIDE. [Concomitant]
     Active Substance: METOCLOPRAMIDE
     Indication: NAUSEA
     Route: 042
     Dates: start: 20150908, end: 20150908
  7. METHYLPREDNISOLONE. [Concomitant]
     Active Substance: METHYLPREDNISOLONE
     Indication: INFUSION RELATED REACTION
     Route: 042
     Dates: start: 20150908, end: 20150908

REACTIONS (1)
  - Disseminated intravascular coagulation [Recovered/Resolved]

NARRATIVE: CASE EVENT DATE: 20150908
